FAERS Safety Report 15654377 (Version 5)
Quarter: 2019Q3

REPORT INFORMATION
  Report Type: Report from Study
  Country: None (occurrence: US)
  Receive Date: 20181126
  Receipt Date: 20190704
  Transmission Date: 20191004
  Serious: Yes (Hospitalization, Other)
  Sender: FDA-Public Use
  Company Number: US-ABBVIE-18K-163-2565638-00

PATIENT
  Age: 62 Year
  Sex: Male

DRUGS (7)
  1. RITUXAN [Concomitant]
     Active Substance: RITUXIMAB
     Indication: CHRONIC LYMPHOCYTIC LEUKAEMIA
     Dosage: MONTHLY INFUSIONS
  2. FLOMAX [Concomitant]
     Active Substance: TAMSULOSIN HYDROCHLORIDE
     Indication: CHRONIC LYMPHOCYTIC LEUKAEMIA
     Dosage: MONTHLY INFUSIONS
  3. METOPROLOL. [Suspect]
     Active Substance: METOPROLOL
     Indication: CHRONIC LYMPHOCYTIC LEUKAEMIA
     Dosage: MONTHLY INFUSIONS
     Route: 065
  4. METOPROLOL. [Suspect]
     Active Substance: METOPROLOL
     Dosage: 1/2 TAB
     Route: 065
  5. VENCLEXTA [Suspect]
     Active Substance: VENETOCLAX
     Route: 048
     Dates: start: 201902
  6. VENCLEXTA [Suspect]
     Active Substance: VENETOCLAX
     Indication: CHRONIC LYMPHOCYTIC LEUKAEMIA
     Route: 048
     Dates: start: 20180828, end: 20181022
  7. RITUXAN [Concomitant]
     Active Substance: RITUXIMAB
     Indication: CHRONIC LYMPHOCYTIC LEUKAEMIA
     Dosage: MONTHLY INFUSIONS

REACTIONS (24)
  - Hernia [Recovering/Resolving]
  - Micturition urgency [Not Recovered/Not Resolved]
  - Haematoma [Recovering/Resolving]
  - Haemorrhage [Recovering/Resolving]
  - Genital swelling [Not Recovered/Not Resolved]
  - Gout [Recovered/Resolved]
  - Post procedural constipation [Recovering/Resolving]
  - Prostatomegaly [Recovering/Resolving]
  - Penile oedema [Unknown]
  - Post procedural complication [Not Recovered/Not Resolved]
  - Fluid overload [Unknown]
  - Urinary straining [Recovering/Resolving]
  - Urinary retention [Not Recovered/Not Resolved]
  - Pollakiuria [Not Recovered/Not Resolved]
  - Fatigue [Not Recovered/Not Resolved]
  - Incision site haemorrhage [Unknown]
  - Feeling abnormal [Unknown]
  - Pyrexia [Recovered/Resolved]
  - Muscle spasms [Recovered/Resolved]
  - Aneurysm [Unknown]
  - Fluid retention [Unknown]
  - White blood cell count increased [Recovered/Resolved]
  - Fatigue [Recovered/Resolved]
  - Weight decreased [Not Recovered/Not Resolved]

NARRATIVE: CASE EVENT DATE: 2018
